FAERS Safety Report 25722942 (Version 2)
Quarter: 2025Q3

REPORT INFORMATION
  Report Type: Spontaneous
  Country: EU (occurrence: EU)
  Receive Date: 20250825
  Receipt Date: 20250918
  Transmission Date: 20251021
  Serious: Yes (Other)
  Sender: GILEAD
  Company Number: EU-GILEAD-2025-0725161

PATIENT
  Age: 6 Decade
  Sex: Male

DRUGS (2)
  1. BIKTARVY [Suspect]
     Active Substance: BICTEGRAVIR SODIUM\EMTRICITABINE\TENOFOVIR ALAFENAMIDE FUMARATE
     Indication: HIV infection
     Dosage: 1 DOSAGE FORM, QD (SINGLE-TABLET)
     Route: 065
  2. DORAVIRINE [Concomitant]
     Active Substance: DORAVIRINE

REACTIONS (3)
  - CSF HIV escape syndrome [Recovering/Resolving]
  - Viral load increased [Recovering/Resolving]
  - Drug ineffective [Unknown]
